FAERS Safety Report 7729740-3 (Version None)
Quarter: 2011Q3

REPORT INFORMATION
  Report Type: 
  Country: None (occurrence: None)
  Receive Date: 20110906
  Receipt Date: 20110829
  Transmission Date: 20111222
  Serious: Yes (Hospitalization)
  Sender: FDA-Public Use
  Company Number: IT-ROCHE-795343

PATIENT
  Sex: Male
  Weight: 90 kg

DRUGS (9)
  1. DIOSMINE [Concomitant]
     Indication: GLIOBLASTOMA
     Dosage: DRUG REPORTED AS: DIOSMINE/ESPERILINE
     Route: 048
     Dates: start: 20110622
  2. LEVETIRACETAM [Concomitant]
     Indication: GLIOBLASTOMA
     Route: 048
     Dates: start: 20100608, end: 20110801
  3. BROMAZEPAM [Concomitant]
     Indication: GLIOBLASTOMA
     Dosage: DRUG REPORTED AS: BROMAZEPAN
     Route: 048
     Dates: start: 20110804
  4. IRINOTECAN HCL [Suspect]
     Indication: GLIOBLASTOMA
     Route: 042
     Dates: start: 20110330, end: 20110330
  5. BEVACIZUMAB [Suspect]
     Indication: GLIOBLASTOMA
     Route: 042
     Dates: start: 20110330, end: 20110728
  6. OMEPRAZOLE [Concomitant]
     Indication: GLIOBLASTOMA
     Route: 048
     Dates: start: 20110330
  7. LEVETIRACETAM [Concomitant]
     Dosage: DOSE: 1500 U, FREQ: EVERY DAY
     Route: 048
     Dates: start: 20110802
  8. AMITRIPTILINA [Concomitant]
     Indication: GLIOBLASTOMA
     Route: 048
     Dates: start: 20110804
  9. DEXAMETHASONE [Concomitant]
     Indication: GLIOBLASTOMA
     Route: 048
     Dates: start: 20110709

REACTIONS (2)
  - NERVOUS SYSTEM DISORDER [None]
  - CONVULSION [None]
